FAERS Safety Report 7006686-X (Version None)
Quarter: 2010Q3

REPORT INFORMATION
  Report Type: 
  Country: None (occurrence: None)
  Receive Date: 20100921
  Receipt Date: 20100916
  Transmission Date: 20110219
  Serious: Yes (Other)
  Sender: FDA-Public Use
  Company Number: FI-BRISTOL-MYERS SQUIBB COMPANY-15290703

PATIENT
  Age: 51 Year
  Sex: Female

DRUGS (3)
  1. ABILIFY [Suspect]
     Indication: SCHIZOAFFECTIVE DISORDER
     Dosage: INTIAL THERAPY:15 MG AND THEN INCREASED TO 30 MG
     Dates: end: 20100101
  2. CETIRIZINE HCL [Concomitant]
     Indication: HYPERSENSITIVITY
  3. NITRAZEPAM [Concomitant]
     Indication: INSOMNIA

REACTIONS (2)
  - DIZZINESS [None]
  - VISUAL IMPAIRMENT [None]
